FAERS Safety Report 4299656-6 (Version None)
Quarter: 2004Q1

REPORT INFORMATION
  Report Type: 
  Country: None (occurrence: None)
  Receive Date: 20040219
  Receipt Date: 20040206
  Transmission Date: 20041129
  Serious: Yes (Hospitalization)
  Sender: FDA-Public Use
  Company Number: PHEH2004US01663

PATIENT
  Age: 9 Year
  Sex: Male

DRUGS (3)
  1. TRILEPTAL [Suspect]
     Indication: CONVULSION
     Dosage: 240 MG, BID
     Route: 048
     Dates: start: 20000101, end: 20040103
  2. TRILEPTAL [Suspect]
     Dosage: 300 MG, BID
     Route: 048
  3. DILANTIN [Concomitant]
     Indication: CONVULSION
     Dosage: UNK, UNK
     Route: 048
     Dates: end: 20040104

REACTIONS (8)
  - CHOLECYSTECTOMY [None]
  - CHOLELITHIASIS [None]
  - CONVULSION [None]
  - DRUG LEVEL DECREASED [None]
  - MALABSORPTION [None]
  - PANCREATITIS [None]
  - PYREXIA [None]
  - SEPTIC SHOCK [None]
